FAERS Safety Report 19886150 (Version 3)
Quarter: 2021Q4

REPORT INFORMATION
  Report Type: Report from Study
  Country: US (occurrence: US)
  Receive Date: 20210928
  Receipt Date: 20211125
  Transmission Date: 20220304
  Serious: Yes (Hospitalization)
  Sender: FDA-Public Use
  Company Number: NVSC2021US217524

PATIENT
  Age: 82 Year
  Sex: Female

DRUGS (4)
  1. ENTRESTO [Suspect]
     Active Substance: SACUBITRIL\VALSARTAN
     Indication: Product used for unknown indication
     Dosage: UNK
     Route: 065
  2. ENTRESTO [Suspect]
     Active Substance: SACUBITRIL\VALSARTAN
     Dosage: UNK
     Route: 048
  3. ENTRESTO [Suspect]
     Active Substance: SACUBITRIL\VALSARTAN
     Dosage: 50 MG (24/26 MG), BID
     Route: 048
  4. ELIQUIS [Suspect]
     Active Substance: APIXABAN
     Indication: Heart rate irregular
     Dosage: UNK
     Route: 065

REACTIONS (8)
  - COVID-19 [Recovering/Resolving]
  - Mental disorder [Recovering/Resolving]
  - Speech disorder [Recovering/Resolving]
  - Incoherent [Recovering/Resolving]
  - Joint swelling [Recovering/Resolving]
  - Peripheral swelling [Recovering/Resolving]
  - Weight increased [Recovering/Resolving]
  - Product dose omission issue [Unknown]

NARRATIVE: CASE EVENT DATE: 20210811
